FAERS Safety Report 22623615 (Version 1)
Quarter: 2023Q2

REPORT INFORMATION
  Report Type: Spontaneous
  Country: GB (occurrence: GB)
  Receive Date: 20230621
  Receipt Date: 20230621
  Transmission Date: 20230721
  Serious: Yes (Other)
  Sender: FDA-Public Use
  Company Number: None

PATIENT
  Sex: Male

DRUGS (1)
  1. MIRTAZAPINE [Suspect]
     Active Substance: MIRTAZAPINE
     Dosage: UNK
     Route: 065

REACTIONS (5)
  - Abnormal weight gain [Unknown]
  - Diabetes mellitus [Unknown]
  - Quality of life decreased [Unknown]
  - Mobility decreased [Unknown]
  - Self esteem decreased [Unknown]
